FAERS Safety Report 9654739 (Version 1)
Quarter: 2013Q4

REPORT INFORMATION
  Report Type: Spontaneous
  Country: DE (occurrence: None)
  Receive Date: 20131015
  Receipt Date: 20131015
  Transmission Date: 20140711
  Serious: Yes (Death)
  Sender: FDA-Public Use
  Company Number: 2013038278

PATIENT
  Age: 87 Year
  Sex: Female

DRUGS (3)
  1. PRIVIGEN [Suspect]
     Indication: SECONDARY IMMUNODEFICIENCY
     Dosage: 10 G QD, INFUSION RATE: 0,27 ML/MIN TO 1.8 ML/MIN
     Dates: start: 20120919, end: 20120919
  2. ANTIBIOTICS (ANTIBIOTICS) [Concomitant]
  3. GLUCOCORTICOIDS (GLUCOCORTICOIDS) [Concomitant]

REACTIONS (3)
  - Pneumonia [None]
  - Disease complication [None]
  - Non-Hodgkin^s lymphoma [None]
